FAERS Safety Report 8620804-9 (Version None)
Quarter: 2012Q3

REPORT INFORMATION
  Report Type: 
  Country: None (occurrence: None)
  Receive Date: 20120824
  Receipt Date: 20120820
  Transmission Date: 20120928
  Serious: No
  Sender: FDA-Public Use
  Company Number: US-BAYER-2012-086681

PATIENT
  Age: 49 Year
  Sex: Female
  Weight: 64 kg

DRUGS (8)
  1. BETASERON [Suspect]
     Indication: PRODUCT USED FOR UNKNOWN INDICATION
     Dosage: 1 ML, QOD
     Route: 058
  2. AMITRIPTYLINE HYDROCHLORIDE [Concomitant]
  3. LOVAZA [Concomitant]
     Dosage: 1 G, UNK
  4. HYDROCHLOROTHIAZIDE [Concomitant]
     Dosage: 25 MG, UNK
  5. XANAX [Concomitant]
     Dosage: 2 MG, UNK
  6. VIVELLE-DOT [Concomitant]
  7. SYNTHROID [Concomitant]
     Dosage: 175 ?G, UNK
  8. LISINOPRIL [Concomitant]
     Dosage: 10 MG, UNK

REACTIONS (1)
  - PAIN IN EXTREMITY [None]
